FAERS Safety Report 7260482-7 (Version None)
Quarter: 2011Q1

REPORT INFORMATION
  Report Type: 
  Country: None (occurrence: None)
  Receive Date: 20110130
  Receipt Date: 20101122
  Transmission Date: 20110831
  Serious: No
  Sender: FDA-Public Use
  Company Number: US-ABBOTT-10P-163-0686929-00

PATIENT
  Sex: Male
  Weight: 86.26 kg

DRUGS (2)
  1. ADVAIR [Concomitant]
     Indication: ASTHMA
     Route: 055
  2. HUMIRA [Suspect]
     Indication: PSORIASIS
     Route: 058
     Dates: start: 20100701

REACTIONS (1)
  - DRUG EFFECT DECREASED [None]
